FAERS Safety Report 18067292 (Version 4)
Quarter: 2021Q4

REPORT INFORMATION
  Report Type: Spontaneous
  Country: IT (occurrence: IT)
  Receive Date: 20200724
  Receipt Date: 20211112
  Transmission Date: 20220303
  Serious: Yes (Hospitalization, Other)
  Sender: FDA-Public Use
  Company Number: IT-ORION CORPORATION ORION PHARMA-DEX 2020-0129

PATIENT
  Age: 94 Year
  Sex: Male
  Weight: 100 kg

DRUGS (8)
  1. DEXMEDETOMIDINE [Suspect]
     Active Substance: DEXMEDETOMIDINE
     Indication: Sedative therapy
     Dosage: 0.7-0.8 ?G/KG/H
     Route: 042
  2. MEPIVACAINE [Concomitant]
     Active Substance: MEPIVACAINE HYDROCHLORIDE
     Indication: Local anaesthesia
     Dosage: 1% 20 ML(BEFORE THE SKIN INCISION, MEPIVACAINE WAS INFILTRATED ON THE OPERATIVE SITE)
     Route: 065
  3. SUFENTANIL [Concomitant]
     Active Substance: SUFENTANIL
     Indication: Product used for unknown indication
     Dosage: 17.5 MICROGRAM, IN  DIVIDED DOSES
     Route: 065
  4. SUFENTANIL [Concomitant]
     Active Substance: SUFENTANIL
     Dosage: UNK, IN DIVIDED DOSES
  5. SUFENTANIL [Concomitant]
     Active Substance: SUFENTANIL
     Dosage: TOTAL 17.5UG ; IN DIVIDED DOSES
     Route: 040
  6. KETOPROFEN [Concomitant]
     Active Substance: KETOPROFEN
     Indication: Product used for unknown indication
     Dosage: IN THE POST-OPERATIVE PERIOD IN AN AROUND-THE-CLOCK DOSING REGIMEN.
     Route: 048
  7. ROPIVACAINE [Concomitant]
     Active Substance: ROPIVACAINE
     Indication: Nerve block
     Dosage: 0.375% 40 ML(RECEIVED ROPIVACAINE IN SUPRA-INGUINAL APPRAOCH)
     Route: 065
  8. ACETAMINOPHEN [Concomitant]
     Active Substance: ACETAMINOPHEN
     Indication: Product used for unknown indication
     Dosage: IN THE POST-OPERATIVE PERIOD IN AN AROUND-THE-CLOCK DOSING REGIMEN.
     Route: 048

REACTIONS (3)
  - Anaemia [Recovered/Resolved]
  - Hypovolaemia [Recovered/Resolved]
  - Hypotension [Recovered/Resolved]
